FAERS Safety Report 15898210 (Version 2)
Quarter: 2020Q4

REPORT INFORMATION
  Report Type: Spontaneous
  Country: US (occurrence: US)
  Receive Date: 20190201
  Receipt Date: 20201019
  Transmission Date: 20210113
  Serious: Yes (Disabling)
  Sender: FDA-Public Use
  Company Number: US-TEVA-2019-US-1003761

PATIENT
  Age: 60 Year
  Sex: Female

DRUGS (12)
  1. EZETIMIBE 10MG [Concomitant]
     Active Substance: EZETIMIBE
  2. TAXOTERE [Suspect]
     Active Substance: DOCETAXEL
     Indication: BREAST CANCER FEMALE
     Dosage: DOSAGE: 135MG, NUMBER OF CYCLES: 04, FREQUENCY - EVERY THREE WEEKS
     Route: 065
     Dates: start: 20140102, end: 20140306
  3. VITAMIN D3 1000 MG [Concomitant]
  4. POTASSIUM 10MG [Concomitant]
  5. SIMVASTATIN 20MG [Concomitant]
     Active Substance: SIMVASTATIN
  6. DOCETAXEL HOSPIRA [Suspect]
     Active Substance: DOCETAXEL
     Indication: BREAST CANCER FEMALE
     Dosage: DOSAGE: 135MG, NUMBER OF CYCLES: 04, FREQUENCY - EVERY THREE WEEKS
     Route: 065
     Dates: start: 20140102, end: 20140306
  7. LOSARTAN 12.5MG [Concomitant]
  8. DOCETAXEL. [Suspect]
     Active Substance: DOCETAXEL
     Indication: BREAST CANCER FEMALE
     Dosage: DOSAGE: 135MG, NUMBER OF CYCLES: 04, FREQUENCY - EVERY THREE WEEKS
     Route: 065
     Dates: start: 20140102, end: 20140306
  9. CYCLOPHOSPHAMIDE. [Concomitant]
     Active Substance: CYCLOPHOSPHAMIDE
  10. ANASTROZOLE 1MG [Concomitant]
     Active Substance: ANASTROZOLE
  11. ASPIRIN 81MG [Concomitant]
     Active Substance: ASPIRIN
  12. BASAGLAR 65 UNIT [Concomitant]

REACTIONS (4)
  - Madarosis [Not Recovered/Not Resolved]
  - Hair colour changes [Not Recovered/Not Resolved]
  - Hair texture abnormal [Not Recovered/Not Resolved]
  - Alopecia [Not Recovered/Not Resolved]

NARRATIVE: CASE EVENT DATE: 2014
